FAERS Safety Report 25681845 (Version 1)
Quarter: 2025Q3

REPORT INFORMATION
  Report Type: Spontaneous
  Country: US (occurrence: US)
  Receive Date: 20250814
  Receipt Date: 20250814
  Transmission Date: 20251021
  Serious: No
  Sender: GALDERMA
  Company Number: US-GALDERMA-US2025014338

PATIENT

DRUGS (1)
  1. EPIDUO [Suspect]
     Active Substance: ADAPALENE\BENZOYL PEROXIDE
     Indication: Dry skin
     Route: 061

REACTIONS (2)
  - Intentional product misuse [Recovered/Resolved]
  - Drug ineffective for unapproved indication [Recovered/Resolved]
